FAERS Safety Report 8360051-1 (Version None)
Quarter: 2012Q2

REPORT INFORMATION
  Report Type: 
  Country: None (occurrence: None)
  Receive Date: 20120515
  Receipt Date: 20120509
  Transmission Date: 20120825
  Serious: Yes (Hospitalization)
  Sender: FDA-Public Use
  Company Number: PHHY2012FR040496

PATIENT
  Age: 77 Year
  Sex: Female

DRUGS (5)
  1. TEGRETOL-XR [Suspect]
     Dosage: 400 MG, BID
     Route: 048
     Dates: end: 20120413
  2. XANAX [Concomitant]
     Dosage: 0.25 MG, TID
     Route: 048
  3. CLONAZEPAM [Concomitant]
     Dosage: 2 DRP, QD
     Route: 048
  4. LAMICTAL [Concomitant]
     Dosage: 300 MG, QD
     Route: 048
  5. LEVOTHYROXINE SODIUM [Concomitant]
     Dosage: 1 DF, QD
     Route: 048

REACTIONS (4)
  - BALANCE DISORDER [None]
  - HAEMOGLOBIN DECREASED [None]
  - FALL [None]
  - HYPONATRAEMIA [None]
